FAERS Safety Report 25589815 (Version 1)
Quarter: 2025Q3

REPORT INFORMATION
  Report Type: Report from Study
  Country: AR (occurrence: AR)
  Receive Date: 20250722
  Receipt Date: 20250722
  Transmission Date: 20251021
  Serious: Yes (Hospitalization, Other)
  Sender: JOHNSON AND JOHNSON
  Company Number: AR-JNJFOC-20241240939

PATIENT
  Age: 69 Year
  Sex: Female
  Weight: 56 kg

DRUGS (2)
  1. SIMPONI [Suspect]
     Active Substance: GOLIMUMAB
     Indication: Rheumatoid arthritis
     Route: 058
     Dates: start: 20210918
  2. LEVOTHYROXINE [Concomitant]
     Active Substance: LEVOTHYROXINE
     Indication: Product used for unknown indication

REACTIONS (13)
  - Syncope [Not Recovered/Not Resolved]
  - Rheumatoid arthritis [Not Recovered/Not Resolved]
  - Accident at home [Not Recovered/Not Resolved]
  - Coronary artery disease [Unknown]
  - Vomiting [Unknown]
  - Blood pressure fluctuation [Unknown]
  - Cardiac murmur [Unknown]
  - Panic attack [Not Recovered/Not Resolved]
  - Thought blocking [Unknown]
  - Antisocial behaviour [Unknown]
  - Memory impairment [Unknown]
  - Nasopharyngitis [Unknown]
  - Hypertension [Recovering/Resolving]

NARRATIVE: CASE EVENT DATE: 20241207
